FAERS Safety Report 5646660-9 (Version None)
Quarter: 2008Q1

REPORT INFORMATION
  Report Type: 
  Country: None (occurrence: None)
  Receive Date: 20080303
  Receipt Date: 20080227
  Transmission Date: 20080703
  Serious: Yes (Death, Other)
  Sender: FDA-Public Use
  Company Number: PHFR2007GB02237

PATIENT
  Sex: Male

DRUGS (1)
  1. DESFERAL [Suspect]
     Indication: IRON OVERLOAD
     Route: 065

REACTIONS (3)
  - CARDIAC FAILURE [None]
  - IRON OVERLOAD [None]
  - TREATMENT NONCOMPLIANCE [None]
